FAERS Safety Report 17977134 (Version 2)
Quarter: 2020Q3

REPORT INFORMATION
  Report Type: Report from Study
  Country: IT (occurrence: IT)
  Receive Date: 20200702
  Receipt Date: 20200909
  Transmission Date: 20201103
  Serious: Yes (Hospitalization)
  Sender: FDA-Public Use
  Company Number: IT-EISAI MEDICAL RESEARCH-EC-2020-076756

PATIENT
  Age: 90 Year
  Sex: Male
  Weight: 70 kg

DRUGS (4)
  1. LENVIMA [Suspect]
     Active Substance: LENVATINIB
     Indication: HEPATOCELLULAR CARCINOMA
     Route: 048
     Dates: start: 20200520, end: 20200607
  2. QUINAPRIL IDROCLOROTIAZIDE [Concomitant]
     Dosage: 20 MG +12.5 MG
  3. PANTORC [Concomitant]
     Active Substance: PANTOPRAZOLE SODIUM
  4. VASEXTEN [Concomitant]
     Active Substance: BARNIDIPINE HYDROCHLORIDE

REACTIONS (4)
  - Asthenia [Recovered/Resolved]
  - Injury [Recovering/Resolving]
  - Head injury [Recovered/Resolved]
  - Loss of consciousness [Recovered/Resolved]

NARRATIVE: CASE EVENT DATE: 20200607
